FAERS Safety Report 19685142 (Version 1)
Quarter: 2021Q3

REPORT INFORMATION
  Report Type: Report from Study
  Country: None (occurrence: IL)
  Receive Date: 20210811
  Receipt Date: 20210811
  Transmission Date: 20211014
  Serious: Yes (Hospitalization)
  Sender: FDA-Public Use
  Company Number: IL-ABBVIE-21K-082-4031535-00

PATIENT
  Sex: Female

DRUGS (1)
  1. HUMIRA [Suspect]
     Active Substance: ADALIMUMAB
     Indication: CROHN^S DISEASE
     Route: 058
     Dates: start: 20210715, end: 202108

REACTIONS (3)
  - Gastrointestinal perforation [Not Recovered/Not Resolved]
  - Enteritis [Not Recovered/Not Resolved]
  - Crohn^s disease [Not Recovered/Not Resolved]
